FAERS Safety Report 4709885-2 (Version None)
Quarter: 2005Q3

REPORT INFORMATION
  Report Type: 
  Country: None (occurrence: None)
  Receive Date: 20050708
  Receipt Date: 20050622
  Transmission Date: 20060218
  Serious: Yes (Disabling)
  Sender: FDA-Public Use
  Company Number: US-MERCK-0506USA03262

PATIENT
  Age: 70 Year
  Sex: Male
  Weight: 103 kg

DRUGS (11)
  1. ZOCOR [Suspect]
     Indication: HYPERLIPIDAEMIA
     Route: 048
     Dates: start: 19970601, end: 20050209
  2. ZOCOR [Suspect]
     Indication: BLOOD CHOLESTEROL INCREASED
     Route: 048
     Dates: start: 19970601, end: 20050209
  3. LASIX [Concomitant]
     Indication: FLUID OVERLOAD
     Route: 048
     Dates: start: 19970601
  4. ATENOLOL [Concomitant]
     Indication: HYPERTENSION
     Route: 048
     Dates: start: 19970601
  5. IMDUR [Concomitant]
     Indication: HYPERTENSION
     Route: 048
     Dates: start: 19960401
  6. PRILOSEC [Concomitant]
     Indication: GASTROOESOPHAGEAL REFLUX DISEASE
     Route: 048
     Dates: start: 19980901
  7. ASPIRIN [Concomitant]
     Indication: ANTICOAGULANT THERAPY
     Route: 048
     Dates: start: 19970401
  8. NAPROXEN [Concomitant]
     Indication: PAIN
     Route: 048
     Dates: start: 20040501
  9. CALTRATE [Concomitant]
     Route: 065
     Dates: start: 20050201
  10. MULTIVITAMIN [Concomitant]
     Route: 065
     Dates: start: 20050201
  11. NEURONTIN [Concomitant]
     Indication: PAIN
     Route: 048
     Dates: start: 20050201

REACTIONS (4)
  - ASTHENIA [None]
  - BACK PAIN [None]
  - DIFFICULTY IN WALKING [None]
  - PAIN IN EXTREMITY [None]
